FAERS Safety Report 17670146 (Version 2)
Quarter: 2020Q2

REPORT INFORMATION
  Report Type: Spontaneous
  Country: IT (occurrence: IT)
  Receive Date: 20200415
  Receipt Date: 20200427
  Transmission Date: 20200713
  Serious: Yes (Hospitalization)
  Sender: FDA-Public Use
  Company Number: NVSC2020IT099766

PATIENT
  Age: 76 Year
  Sex: Female

DRUGS (1)
  1. QUETIAPINE FUMARATE. [Suspect]
     Active Substance: QUETIAPINE FUMARATE
     Indication: PRODUCT ADMINISTRATION ERROR
     Dosage: 200 MG, QD
     Route: 048
     Dates: start: 20191219, end: 20191219

REACTIONS (3)
  - Paraesthesia [Recovering/Resolving]
  - Medication error [Recovering/Resolving]
  - Tachycardia [Recovering/Resolving]

NARRATIVE: CASE EVENT DATE: 20191219
